FAERS Safety Report 10067296 (Version 1)
Quarter: 2014Q2

REPORT INFORMATION
  Report Type: Spontaneous
  Country: US (occurrence: None)
  Receive Date: 20140408
  Receipt Date: 20140408
  Transmission Date: 20141212
  Serious: Yes (Other)
  Sender: FDA-Public Use
  Company Number: None

PATIENT
  Age: 65 Year
  Sex: Female
  Weight: 84.82 kg

DRUGS (2)
  1. GABAPENTIN [Suspect]
     Dosage: 400MG/600MG  400 BID 600 QHS  PO?DATES OF USE: , INCREASE DUE 2/4/14
     Route: 048
  2. VERAPAMIL ER [Suspect]
     Route: 048
     Dates: start: 20131217

REACTIONS (1)
  - Visual impairment [None]
